FAERS Safety Report 15863043 (Version 1)
Quarter: 2019Q1

REPORT INFORMATION
  Report Type: Spontaneous
  Country: KR (occurrence: KR)
  Receive Date: 20190124
  Receipt Date: 20190124
  Transmission Date: 20190417
  Serious: Yes (Other)
  Sender: FDA-Public Use
  Company Number: KR-COLLEGIUM PHARMACEUTICAL, INC.-KR-2019COL000058

PATIENT
  Age: 44 Year
  Sex: Male

DRUGS (1)
  1. NUCYNTA ER [Suspect]
     Active Substance: TAPENTADOL HYDROCHLORIDE
     Indication: PROCEDURAL PAIN
     Dosage: 50 MG, BID
     Route: 048

REACTIONS (1)
  - Delirium [Unknown]
